FAERS Safety Report 12800917 (Version 1)
Quarter: 2016Q4

REPORT INFORMATION
  Report Type: Spontaneous
  Country: US (occurrence: US)
  Receive Date: 20161002
  Receipt Date: 20161002
  Transmission Date: 20170207
  Serious: No
  Sender: FDA-Public Use
  Company Number: US-ASTRAZENECA-2016SF00844

PATIENT
  Sex: Female

DRUGS (1)
  1. METOPROLOL SUCC [Suspect]
     Active Substance: METOPROLOL SUCCINATE
     Dosage: 1 IN THE MORNING AND ONE HALF IN THE EVENING
     Route: 048

REACTIONS (3)
  - Dizziness [Unknown]
  - Autoimmune disorder [Unknown]
  - Blood pressure decreased [Unknown]
